FAERS Safety Report 9118311 (Version 1)
Quarter: 2013Q1

REPORT INFORMATION
  Report Type: Spontaneous
  Country: US (occurrence: None)
  Receive Date: 20130221
  Receipt Date: 20130221
  Transmission Date: 20140127
  Serious: No
  Sender: FDA-Public Use
  Company Number: None

PATIENT
  Age: 67 Year
  Sex: Female
  Weight: 39 kg

DRUGS (2)
  1. IBUPROFEN [Suspect]
     Indication: INFLAMMATION
     Route: 048
     Dates: start: 20130213, end: 20130213
  2. IBUPROFEN [Suspect]
     Indication: SWELLING
     Route: 048
     Dates: start: 20130213, end: 20130213

REACTIONS (5)
  - Angioedema [None]
  - Swelling face [None]
  - Condition aggravated [None]
  - Lip swelling [None]
  - Swollen tongue [None]
